FAERS Safety Report 8763746 (Version 3)
Quarter: 2013Q1

REPORT INFORMATION
  Report Type: Spontaneous
  Country: US (occurrence: None)
  Receive Date: 20120828
  Receipt Date: 20121207
  Transmission Date: 20140127
  Serious: Yes (Death, Hospitalization)
  Sender: FDA-Public Use
  Company Number: 2012-0685

PATIENT
  Age: 64 Year
  Sex: Male
  Weight: 63.05 kg

DRUGS (18)
  1. KYPROLIS [Suspect]
     Indication: PLASMA CELL MYELOMA
     Dosage: (CYCLE 1, DAYS 1 AND 2),INTRAVENOUS
     Route: 042
     Dates: start: 20120801, end: 20120802
  2. BUMEX(BUMETANIDE) (BUMETANIDE) [Concomitant]
  3. DEXAMETHASONE(DEXAMETHASONE)(DEXAMETHASONE) [Concomitant]
  4. AMBIEN CR(ZOLPIDEM TARTRATE)(12.5 MILLIGRAM, TABLET) (ZOLPIDEM TARTRATE) [Concomitant]
  5. POTASSIUM CHLORIDE(POTASSIUM CHLORIDE)(20 MILLIEQUIVALENTS, TABLET) (POTASSIUM CHLORIDE) [Concomitant]
  6. PEPCID AC(FAMOTIDINE) (10 MILLIGRAM, TABLET) (FAMOTIDINE) [Concomitant]
  7. ZOLOFT(SERTRALINE HYDROCHLORIDE) (50 MILLIGRAM, TABLET) (SERTRALINE HYDROCHLORIDE) [Concomitant]
  8. BACTRIM DS(SULFAMETHOXAZOLE) (SULFAMETHOXAZOLE) [Concomitant]
  9. NORVASC(AMLODIPINE BESILATE) (10 MILLIGRAM, TABLET) (AMLODIPINE BESILATE) [Concomitant]
  10. VICODIN(PARACETAMOL) (TABLET) (PARACETAMOL) [Concomitant]
  11. ZOFRAN (ONDANSETRON) (ONDANSETRON) [Concomitant]
  12. CALCIUM 600 + VITAMIN D(ERGOCALCIFEROL) (ERGOCALCIFEROL) [Concomitant]
  13. MAGNESIUM OXIDE(MAGNESIUM OXIDE) (MAGNESIUM OXIDE) [Concomitant]
  14. BIAXIN (CLARITHROMYCIN) (CLARITHROMYCIN) [Concomitant]
  15. VALTREX(VALACICLOVIR HYDROCHLORIDE) (VALACICLOVIR HYDROCHLORIDE) [Concomitant]
  16. LASIX(FUROSEMIDE) (FUROSEMIDE) [Concomitant]
  17. VELCADE(BORTEZOMIB) (BORTEZOMIB) [Concomitant]
  18. REVLIMID(LENALIDOMIDE) (LENALIDOMIDE) [Concomitant]

REACTIONS (5)
  - Respiratory failure [None]
  - Atelectasis [None]
  - Splenomegaly [None]
  - Pleural effusion [None]
  - Pericardial effusion [None]
